FAERS Safety Report 9330152 (Version 2)
Quarter: 2013Q4

REPORT INFORMATION
  Report Type: Spontaneous
  Country: US (occurrence: US)
  Receive Date: 20130604
  Receipt Date: 20131010
  Transmission Date: 20140711
  Serious: Yes (Hospitalization, Other)
  Sender: FDA-Public Use
  Company Number: US-B.I. PHARMACEUTICALS,INC./RIDGEFIELD-2013-BI-15413BP

PATIENT
  Age: 68 Year
  Sex: Female
  Weight: 64 kg

DRUGS (5)
  1. SPIRIVA [Suspect]
     Indication: CHRONIC OBSTRUCTIVE PULMONARY DISEASE
     Dosage: 18 MCG
     Route: 055
     Dates: start: 20130104
  2. NICOTINE TRANSDERMAL SYSTEM [Concomitant]
     Indication: EX-TOBACCO USER
     Dosage: 14 MG
     Dates: start: 201301
  3. CLARITIN [Concomitant]
     Indication: SINUS DISORDER
     Dosage: 10 MG
     Route: 048
     Dates: start: 1997
  4. FOSAMAX [Concomitant]
     Indication: OSTEOPOROSIS
     Route: 048
     Dates: start: 2006
  5. VITAMIN D [Concomitant]
     Indication: OSTEOPOROSIS
     Dosage: 500 MG
     Route: 048
     Dates: start: 2006

REACTIONS (7)
  - Brain neoplasm [Not Recovered/Not Resolved]
  - Pulmonary mass [Not Recovered/Not Resolved]
  - Convulsion [Not Recovered/Not Resolved]
  - Hydrocephalus [Not Recovered/Not Resolved]
  - Weight increased [Not Recovered/Not Resolved]
  - Swelling face [Recovered/Resolved]
  - Fatigue [Not Recovered/Not Resolved]
